FAERS Safety Report 7518667-8 (Version None)
Quarter: 2011Q2

REPORT INFORMATION
  Report Type: 
  Country: None (occurrence: None)
  Receive Date: 20110602
  Receipt Date: 20110518
  Transmission Date: 20111010
  Serious: Yes (Hospitalization)
  Sender: FDA-Public Use
  Company Number: PHHY2011TN43508

PATIENT
  Age: 70 Year
  Sex: Female
  Weight: 67 kg

DRUGS (8)
  1. INSULINE [Concomitant]
  2. NEBIVOLOL HCL [Suspect]
     Dosage: 5 MG, QD
     Dates: start: 20100825
  3. SPIRONOLACTONE [Suspect]
     Dosage: 200 OT, UNK
     Dates: start: 20100825
  4. CHLOROTHIAZIDE [Concomitant]
     Dosage: HALF PER DAY
     Dates: start: 20071125
  5. LYSINE ACETYLSALICYLATE [Concomitant]
     Dosage: 100 MG, QD
  6. FLUVASTATIN [Concomitant]
     Indication: DYSLIPIDAEMIA
     Dosage: UNK
     Dates: start: 20100721
  7. ALLOPURINOL [Concomitant]
  8. AMLODIPINE BESYLATE AND VALSARTAN [Suspect]
     Indication: HYPERTENSION
     Dosage: 160 MG VALS AND 10 MG AMLO, DAILY
     Route: 048
     Dates: start: 20100825, end: 20100905

REACTIONS (5)
  - CIRCULATORY COLLAPSE [None]
  - SHOCK [None]
  - ATRIOVENTRICULAR BLOCK [None]
  - BRADYCARDIA [None]
  - HYPERKALAEMIA [None]
